FAERS Safety Report 16148878 (Version 1)
Quarter: 2019Q2

REPORT INFORMATION
  Report Type: Report from Study
  Country: None (occurrence: US)
  Receive Date: 20190402
  Receipt Date: 20190402
  Transmission Date: 20190711
  Serious: Yes (Other)
  Sender: FDA-Public Use
  Company Number: US-ABBVIE-19K-163-2681414-00

PATIENT
  Age: 73 Year
  Sex: Female
  Weight: 70.37 kg

DRUGS (5)
  1. AMITRIPTYLINE [Concomitant]
     Active Substance: AMITRIPTYLINE
     Indication: SLEEP DISORDER THERAPY
  2. VENLAFAXINE [Concomitant]
     Active Substance: VENLAFAXINE HYDROCHLORIDE
     Indication: DEPRESSION
  3. AMITRIPTYLINE [Concomitant]
     Active Substance: AMITRIPTYLINE
     Indication: FIBROMYALGIA
     Route: 065
  4. HUMIRA [Suspect]
     Active Substance: ADALIMUMAB
     Indication: RHEUMATOID ARTHRITIS
     Route: 058
  5. VENLAFAXINE [Concomitant]
     Active Substance: VENLAFAXINE HYDROCHLORIDE
     Indication: ANXIETY
     Route: 065

REACTIONS (7)
  - Occipital neuralgia [Not Recovered/Not Resolved]
  - Haematocrit increased [Unknown]
  - Arthralgia [Not Recovered/Not Resolved]
  - Aspartate aminotransferase increased [Unknown]
  - Mean platelet volume decreased [Unknown]
  - Skin cancer [Recovering/Resolving]
  - Alanine aminotransferase increased [Unknown]
